APPROVED DRUG PRODUCT: ISONIAZID
Active Ingredient: ISONIAZID
Strength: 50MG/5ML
Dosage Form/Route: SYRUP;ORAL
Application: A088235 | Product #001 | TE Code: AA
Applicant: CMP PHARMA INC
Approved: Nov 10, 1983 | RLD: Yes | RS: Yes | Type: RX